FAERS Safety Report 16107886 (Version 1)
Quarter: 2019Q1

REPORT INFORMATION
  Report Type: Spontaneous
  Country: US (occurrence: US)
  Receive Date: 20190322
  Receipt Date: 20190322
  Transmission Date: 20190418
  Serious: No
  Sender: FDA-Public Use
  Company Number: US-TEVA-2019-US-1017596

PATIENT
  Sex: Female
  Weight: 86 kg

DRUGS (3)
  1. QVAR REDIHALER [Suspect]
     Active Substance: BECLOMETHASONE DIPROPIONATE
     Indication: ASTHMA
  2. MOMETASONE NASAL SPRAY [Concomitant]
  3. XOPENEX [Concomitant]
     Active Substance: LEVALBUTEROL HYDROCHLORIDE

REACTIONS (3)
  - Peak expiratory flow rate decreased [Unknown]
  - Incorrect dose administered [Unknown]
  - Drug ineffective [Unknown]
